FAERS Safety Report 20041429 (Version 1)
Quarter: 2021Q4

REPORT INFORMATION
  Report Type: Spontaneous
  Country: US (occurrence: US)
  Receive Date: 20211108
  Receipt Date: 20211108
  Transmission Date: 20220303
  Serious: No
  Sender: FDA-Public Use
  Company Number: US-drreddys-SPO/USA/21/0143395

PATIENT
  Age: 15 Year
  Sex: Male

DRUGS (1)
  1. ZENATANE [Suspect]
     Active Substance: ISOTRETINOIN
     Indication: Product used for unknown indication
     Dosage: RMA ISSUE DATE:27 JULY 2021 1:55:30 PM,14 SEPTEMBER 2021 5:26:10 PM

REACTIONS (3)
  - Dysphagia [Unknown]
  - Retching [Unknown]
  - Product quality issue [Unknown]
